FAERS Safety Report 11046923 (Version 4)
Quarter: 2015Q4

REPORT INFORMATION
  Report Type: Spontaneous
  Country: US (occurrence: US)
  Receive Date: 20150420
  Receipt Date: 20151009
  Transmission Date: 20160304
  Serious: Yes (Hospitalization)
  Sender: FDA-Public Use
  Company Number: US-BAYER-2015-141591

PATIENT
  Age: 20 Year
  Sex: Female

DRUGS (5)
  1. IMITREX [Concomitant]
     Active Substance: SUMATRIPTAN\SUMATRIPTAN SUCCINATE
     Indication: MIGRAINE
  2. XANAX [Concomitant]
     Active Substance: ALPRAZOLAM
  3. LEXAPRO [Concomitant]
     Active Substance: ESCITALOPRAM OXALATE
     Indication: PANIC ATTACK
  4. MIRENA [Suspect]
     Active Substance: LEVONORGESTREL
     Indication: CONTRACEPTION
     Dosage: 20 MCG/24HR, CONT
     Route: 015
     Dates: start: 20120814, end: 20130622
  5. AUGMENTIN [Concomitant]
     Active Substance: AMOXICILLIN\CLAVULANATE POTASSIUM
     Indication: ANTIBIOTIC THERAPY

REACTIONS (12)
  - Injury [Recovered/Resolved]
  - Pelvic pain [Recovered/Resolved]
  - Activities of daily living impaired [Recovered/Resolved]
  - Pain [Recovered/Resolved]
  - Uterine perforation [Recovered/Resolved]
  - Depression [None]
  - Anxiety [None]
  - Weight increased [None]
  - Device issue [Recovered/Resolved]
  - Device dislocation [Recovered/Resolved]
  - Emotional distress [None]
  - Device difficult to use [None]

NARRATIVE: CASE EVENT DATE: 201208
